FAERS Safety Report 10132100 (Version 3)
Quarter: 2014Q2

REPORT INFORMATION
  Report Type: Spontaneous
  Country: US (occurrence: US)
  Receive Date: 20140428
  Receipt Date: 20140605
  Transmission Date: 20141212
  Serious: Yes (Hospitalization, Other)
  Sender: FDA-Public Use
  Company Number: US-PFIZER INC-2014116570

PATIENT
  Age: 83 Year
  Sex: Female

DRUGS (16)
  1. XELJANZ [Suspect]
     Indication: RHEUMATOID ARTHRITIS
     Dosage: 5 MG, 2X/DAY
     Route: 048
     Dates: start: 20131002, end: 20131016
  2. METHOTREXATE [Suspect]
     Indication: RHEUMATOID ARTHRITIS
     Dosage: UNK
     Dates: end: 20131016
  3. PREDNISONE [Concomitant]
     Dosage: 5 MG, 1X/DAY WITH BREAKFAST
     Dates: end: 20131016
  4. VENTOLINE INHALATOR [Concomitant]
     Indication: WHEEZING
     Dosage: UNK, TWICE A DAY AS NEEDED
  5. ARIMIDEX [Concomitant]
     Dosage: 1 MG, 1X/DAY
  6. LIPITOR [Concomitant]
     Dosage: 40 MG, 1X/DAY AT BEDTIME
  7. BACITRACIN/POLYMYXIN B SULFATE [Concomitant]
     Dosage: UNK, 2X/DAY IN THE NASAL AIRWAY
     Route: 045
  8. DIOVAN (VALSARTAN) [Concomitant]
     Dosage: 160, DAILY
  9. VICODIN ES [Concomitant]
     Indication: PAIN
     Dosage: 1 DF, Q 6 H AS NEEDED
  10. IBANDRONATE SODIUM [Concomitant]
     Dosage: 150 MG, MONTHLY AS DIRECTED
  11. TOPROL XL [Concomitant]
     Dosage: 100 MG, 1X/DAY
  12. MICRO-K [Concomitant]
     Dosage: 8 MEQ, 1X/DAY
  13. SYMBICORT [Concomitant]
     Dosage: 80 PER 4.5 TWO PUFFS, 2X/DAY
  14. DICLOFENAC SODIUM [Concomitant]
     Dosage: UNK, 3 TIMES A DAY PRN TO AFFECTED AREAS
     Route: 061
  15. NEXIUM [Concomitant]
     Dosage: 40 MG, 1X/DAY NIGHTLY
  16. LASIX [Concomitant]
     Dosage: 40 MG, DAILY

REACTIONS (6)
  - Gastrointestinal haemorrhage [Recovered/Resolved]
  - Thrombocytopenia [Recovered/Resolved]
  - Epistaxis [Recovered/Resolved]
  - Anaemia [Recovered/Resolved]
  - Hiatus hernia [Unknown]
  - Gastritis erosive [Unknown]
